FAERS Safety Report 15029495 (Version 1)
Quarter: 2018Q3

REPORT INFORMATION
  Report Type: Spontaneous
  Country: None (occurrence: US)
  Receive Date: 20180619
  Receipt Date: 20180619
  Transmission Date: 20181010
  Serious: No
  Sender: FDA-Public Use
  Company Number: US-AMPHASTAR PHARMACEUTICALS, INC.-2049628

PATIENT
  Age: 70 Year
  Sex: Female
  Weight: 77.27 kg

DRUGS (1)
  1. CORTROSYN [Suspect]
     Active Substance: COSYNTROPIN
     Indication: CORTISOL ABNORMAL
     Route: 065
     Dates: start: 20170706, end: 20170706

REACTIONS (1)
  - Urticaria [Recovering/Resolving]

NARRATIVE: CASE EVENT DATE: 20170706
